FAERS Safety Report 6178056-8 (Version None)
Quarter: 2009Q2

REPORT INFORMATION
  Report Type: 
  Country: None (occurrence: None)
  Receive Date: 20090504
  Receipt Date: 20090428
  Transmission Date: 20091009
  Serious: Yes (Other)
  Sender: FDA-Public Use
  Company Number: US-BAYER-200911331BCC

PATIENT
  Sex: Male

DRUGS (4)
  1. ASPIRIN [Suspect]
     Indication: DRUG USE FOR UNKNOWN INDICATION
     Dates: end: 20090401
  2. PLAVIX [Suspect]
     Indication: DRUG USE FOR UNKNOWN INDICATION
     Route: 048
  3. ELIGARD [Suspect]
     Indication: PROSTATE CANCER
     Dosage: EVERY 6 MONTHS
     Dates: start: 20090403
  4. FISH OIL [Concomitant]

REACTIONS (1)
  - INJECTION SITE HAEMORRHAGE [None]
